FAERS Safety Report 24585011 (Version 2)
Quarter: 2024Q4

REPORT INFORMATION
  Report Type: Report from Study
  Country: CA (occurrence: CA)
  Receive Date: 20241106
  Receipt Date: 20241210
  Transmission Date: 20250115
  Serious: Yes (Disabling, Other)
  Sender: HLS THERAPEUTICS
  Company Number: CA-HLS-202402377

PATIENT
  Age: 21 Year
  Sex: Male

DRUGS (1)
  1. CLOZARIL [Suspect]
     Active Substance: CLOZAPINE
     Indication: Psychotic disorder
     Dosage: 300 MG TWICE DAY
     Route: 048
     Dates: start: 20230628, end: 20240804

REACTIONS (5)
  - Salivary hypersecretion [Recovered/Resolved]
  - Nocturia [Recovered/Resolved]
  - Off label use [Unknown]
  - Sedation [Recovered/Resolved with Sequelae]
  - Drug ineffective for unapproved indication [Unknown]

NARRATIVE: CASE EVENT DATE: 20230701
